FAERS Safety Report 11590478 (Version 1)
Quarter: 2015Q4

REPORT INFORMATION
  Report Type: Spontaneous
  Country: US (occurrence: US)
  Receive Date: 20151002
  Receipt Date: 20151002
  Transmission Date: 20160304
  Serious: Yes (Death)
  Sender: FDA-Public Use
  Company Number: US-PROCTER+GAMBLE-GS15002444

PATIENT
  Age: 63 Year
  Sex: Male

DRUGS (1)
  1. CAMPHOR, UNKNOWN [Suspect]
     Active Substance: CAMPHOR
     Dosage: 4 OZ, 1 ONLY
     Route: 050

REACTIONS (16)
  - Myoclonus [Not Recovered/Not Resolved]
  - Electrocardiogram T wave amplitude decreased [Not Recovered/Not Resolved]
  - Incorrect route of drug administration [Not Recovered/Not Resolved]
  - Vomiting [None]
  - Cerebellar infarction [Not Recovered/Not Resolved]
  - Electroencephalogram abnormal [Not Recovered/Not Resolved]
  - Cardiac arrest [Fatal]
  - Electrocardiogram QT prolonged [None]
  - Accidental exposure to product [Not Recovered/Not Resolved]
  - Apnoea [None]
  - Pneumonia aspiration [Not Recovered/Not Resolved]
  - Hypovolaemia [Not Recovered/Not Resolved]
  - Hypotension [Not Recovered/Not Resolved]
  - Atrial fibrillation [Not Recovered/Not Resolved]
  - Wrong drug administered [Not Recovered/Not Resolved]
  - Acidosis [Not Recovered/Not Resolved]
